FAERS Safety Report 8817191 (Version 2)
Quarter: 2012Q4

REPORT INFORMATION
  Report Type: 
  Country: FR (occurrence: FR)
  Receive Date: 20121004
  Receipt Date: 20121014
  Transmission Date: 20130627
  Serious: Yes (Other)
  Sender: FDA-Public Use
  Company Number: FR-TEVA-362421ISR

PATIENT
  Age: 53 Year
  Sex: Female

DRUGS (9)
  1. VINCRISTINE [Suspect]
     Indication: ANGIOIMMUNOBLASTIC T-CELL LYMPHOMA
  2. PREDNISONE [Suspect]
     Indication: ANGIOIMMUNOBLASTIC T-CELL LYMPHOMA
  3. CYCLOPHOSPHAMID [Suspect]
     Indication: ANGIOIMMUNOBLASTIC T-CELL LYMPHOMA
  4. STEROIDS [Suspect]
     Indication: ANGIOIMMUNOBLASTIC T-CELL LYMPHOMA
  5. PEGYLATED INTERFERON ALFA [Suspect]
     Indication: ANGIOIMMUNOBLASTIC T-CELL LYMPHOMA
  6. ADRIAMYCIN [Suspect]
  7. BLEOMYCIN [Concomitant]
     Indication: HODGKIN^S DISEASE
  8. VINBLASTINE [Concomitant]
     Indication: HODGKIN^S DISEASE
  9. DACARBAZINE [Concomitant]
     Indication: HODGKIN^S DISEASE

REACTIONS (1)
  - Hodgkin^s disease [Recovered/Resolved]
